FAERS Safety Report 23119195 (Version 1)
Quarter: 2023Q4

REPORT INFORMATION
  Report Type: Spontaneous
  Country: NP (occurrence: NP)
  Receive Date: 20231028
  Receipt Date: 20231028
  Transmission Date: 20240110
  Serious: Yes (Life-Threatening, Hospitalization, Other)
  Sender: FDA-Public Use
  Company Number: NP-MankindUS-000099

PATIENT
  Age: 60 Year
  Sex: Female

DRUGS (1)
  1. FUROSEMIDE [Suspect]
     Active Substance: FUROSEMIDE
     Indication: Swelling face

REACTIONS (2)
  - Toxic epidermal necrolysis [Recovering/Resolving]
  - Metabolic acidosis [Unknown]
